FAERS Safety Report 8470194-X (Version None)
Quarter: 2012Q2

REPORT INFORMATION
  Report Type: 
  Country: None (occurrence: None)
  Receive Date: 20120621
  Receipt Date: 20120621
  Transmission Date: 20120825
  Serious: Yes (Other)
  Sender: FDA-Public Use
  Company Number: None

PATIENT
  Sex: Male
  Weight: 61.9 kg

DRUGS (21)
  1. SOURCE CV VITAMINS [Concomitant]
  2. LANSOPRAZOLE [Concomitant]
  3. ADVAIR DISKUS 100/50 [Concomitant]
  4. NOVOLOG [Concomitant]
  5. ZOFRAN [Concomitant]
  6. OXYGEN [Concomitant]
  7. PULMOZYME [Concomitant]
  8. CREON [Concomitant]
  9. CAYSTON [Concomitant]
  10. KALYDECO [Suspect]
     Indication: CYSTIC FIBROSIS
     Dosage: 150 MG, BID, PO
     Route: 048
     Dates: start: 20120301, end: 20120620
  11. DUONEB [Concomitant]
  12. HUMULIN R [Concomitant]
  13. VX770-KALYDECO [Concomitant]
  14. CELEXA [Concomitant]
  15. COLISTIN [Concomitant]
  16. SCANDISHAKES [Concomitant]
  17. VITAMIN D [Concomitant]
  18. LANTUS [Concomitant]
  19. CIALIS [Concomitant]
  20. ZITHROMAX [Concomitant]
  21. SODIUM CHLORIDE CONCENTRATED INJ [Concomitant]

REACTIONS (1)
  - HYPOGLYCAEMIA [None]
